FAERS Safety Report 5884808-1 (Version None)
Quarter: 2008Q3

REPORT INFORMATION
  Report Type: 
  Country: None (occurrence: None)
  Receive Date: 20080916
  Receipt Date: 20080905
  Transmission Date: 20090109
  Serious: Yes (Hospitalization, Disabling, Other)
  Sender: FDA-Public Use
  Company Number: US-ELI_LILLY_AND_COMPANY-US200805002230

PATIENT
  Sex: Female

DRUGS (5)
  1. FORTEO [Suspect]
     Indication: OSTEOPOROSIS
     Dosage: UNK, UNK
     Dates: start: 20070601
  2. FORTEO [Suspect]
     Dosage: UNK, UNK
     Dates: end: 20080512
  3. CALCIUM [Concomitant]
  4. IRON [Concomitant]
  5. ASCORBIC ACID [Concomitant]

REACTIONS (7)
  - ABASIA [None]
  - INTERVERTEBRAL DISC COMPRESSION [None]
  - NERVE INJURY [None]
  - OSTEOMYELITIS [None]
  - PNEUMONIA [None]
  - PYREXIA [None]
  - SOMNOLENCE [None]
